FAERS Safety Report 7756579-5 (Version None)
Quarter: 2011Q3

REPORT INFORMATION
  Report Type: 
  Country: None (occurrence: None)
  Receive Date: 20110916
  Receipt Date: 20110905
  Transmission Date: 20111222
  Serious: Yes (Other)
  Sender: FDA-Public Use
  Company Number: PHHY2011KR79991

PATIENT

DRUGS (4)
  1. BASILIXIMAB [Suspect]
     Indication: RENAL TRANSPLANT
     Dosage: UNK UKN, UNK
  2. MYCOPHENOLATE MOFETIL [Concomitant]
     Dosage: UNK UKN, UNK
  3. TACROLIMUS [Concomitant]
     Dosage: UNK UKN, UNK
  4. STEROIDS NOS [Concomitant]
     Dosage: UNK UKN, UNK

REACTIONS (7)
  - BLOOD CREATININE INCREASED [None]
  - OEDEMA PERIPHERAL [None]
  - URINE OUTPUT DECREASED [None]
  - SWELLING [None]
  - DEEP VEIN THROMBOSIS [None]
  - FEELING HOT [None]
  - PAIN IN EXTREMITY [None]
